FAERS Safety Report 16205450 (Version 2)
Quarter: 2019Q3

REPORT INFORMATION
  Report Type: Spontaneous
  Country: GB (occurrence: GB)
  Receive Date: 20190417
  Receipt Date: 20190705
  Transmission Date: 20191004
  Serious: Yes (Other)
  Sender: FDA-Public Use
  Company Number: GB-AMGEN-GBRSP2019057798

PATIENT
  Age: 64 Year
  Sex: Female
  Weight: 41 kg

DRUGS (15)
  1. POTASSIUM BICARBONATE. [Concomitant]
     Active Substance: POTASSIUM BICARBONATE
     Dosage: 100 MILLIGRAM PER 5 MILLILITRE, AS NECESSARY, 250 ML
  2. SYLK [Concomitant]
     Dosage: 40 MILLIGRAM, AS NECESSARY, VAGINAL MOISTURISER (SYLK LTD)
  3. TARGINACT [Concomitant]
     Active Substance: NALOXONE HYDROCHLORIDE\OXYCODONE HYDROCHLORIDE
     Dosage: 5/2.5 MILLIGRAM, QD, AT NIGHT TIME, 28 TABLETS
  4. CETRABEN [Concomitant]
     Active Substance: PARAFFIN
     Dosage: 150 MILLIGRAM, AS NECESSARY
  5. PROLIA [Suspect]
     Active Substance: DENOSUMAB
     Indication: OSTEOPOROSIS
     Dosage: UNK
     Route: 065
     Dates: start: 20190227
  6. SALBUTAMOL [Concomitant]
     Active Substance: ALBUTEROL
     Dosage: 100 MICROGRAM/DOSE INHALER CFC FREE, TWO PUFFS WHEN REQUIRED, 1 X 200 DOSE
  7. LANSOPRAZOLE. [Concomitant]
     Active Substance: LANSOPRAZOLE
     Dosage: 15 MILLIGRAM, BID, ONE TO BE TAKEN EACH MORNING AND ONE TO BE TAKEN IN THE EVENING, 56 CAPSULES
  8. FLUTICASONE. [Concomitant]
     Active Substance: FLUTICASONE
     Dosage: 125 MICROGRAM, DOSE INHALER CFC FREE, ONE PUFF BID, PREVENTER)
  9. TARGINACT [Concomitant]
     Active Substance: NALOXONE HYDROCHLORIDE\OXYCODONE HYDROCHLORIDE
     Dosage: 10/5 MILLIGRAM, QD, AT NIGHT TIME, 28 TABLETS
  10. MOVICOL PLAIN [Concomitant]
     Active Substance: POLYETHYLENE GLYCOL 3350\POTASSIUM CHLORIDE\SODIUM BICARBONATE\SODIUM CHLORIDE
     Dosage: 13.7 GRAM, BID, 60 SACHET
  11. PRUCALOPRIDE [Concomitant]
     Active Substance: PRUCALOPRIDE
     Dosage: UNK UNK, QD (28 TABLETS)
  12. ELEMENTAL [Concomitant]
     Dosage: EXTRA LIQUID AS DIRECTED, 56X250 ML
  13. HYPROMELLOSE [Concomitant]
     Active Substance: HYPROMELLOSES
     Dosage: 10 MILLILITER (INSTILL ONE DROP FOUR TIMES A DAY INTO)
  14. SODIUM ALGINATE [Concomitant]
     Active Substance: SODIUM ALGINATE
     Dosage: 500 MILLIGRAM PER 5 MILLILITRE
  15. POLYCAL [Concomitant]
     Dosage: 1200 GRAM, POWDER AS NECESSARY

REACTIONS (15)
  - Back pain [Unknown]
  - Abdominal pain upper [Unknown]
  - Injection site swelling [Unknown]
  - Weight decreased [Unknown]
  - Arthralgia [Unknown]
  - Lower respiratory tract infection [Unknown]
  - Skin discolouration [Unknown]
  - Pain [Unknown]
  - Anxiety [Unknown]
  - Blood calcium increased [Recovered/Resolved]
  - Lacrimation increased [Unknown]
  - Pain in extremity [Unknown]
  - Paraesthesia [Unknown]
  - Fatigue [Unknown]
  - Musculoskeletal pain [Unknown]

NARRATIVE: CASE EVENT DATE: 2019
